FAERS Safety Report 25685455 (Version 1)
Quarter: 2025Q3

REPORT INFORMATION
  Report Type: Report from Study
  Country: US (occurrence: US)
  Receive Date: 20250815
  Receipt Date: 20250815
  Transmission Date: 20251020
  Serious: Yes (Hospitalization)
  Sender: PFIZER
  Company Number: US-PFIZER INC-202500162956

PATIENT
  Age: 61 Year
  Sex: Female

DRUGS (3)
  1. PALBOCICLIB [Suspect]
     Active Substance: PALBOCICLIB
     Indication: Vulval cancer
  2. NIVOLUMAB [Suspect]
     Active Substance: NIVOLUMAB
     Indication: Vulval cancer
  3. EVEROLIMUS [Suspect]
     Active Substance: EVEROLIMUS
     Indication: Vulval cancer
     Dosage: 2.5 MG, 1X/DAY

REACTIONS (1)
  - Pancytopenia [Recovered/Resolved]
